FAERS Safety Report 11585677 (Version 3)
Quarter: 2015Q4

REPORT INFORMATION
  Report Type: Report from Study
  Country: BR (occurrence: BR)
  Receive Date: 20151001
  Receipt Date: 20151019
  Transmission Date: 20160304
  Serious: Yes (Hospitalization, Other)
  Sender: FDA-Public Use
  Company Number: PHHY2015BR118088

PATIENT
  Sex: Female
  Weight: 68 kg

DRUGS (7)
  1. FORASEQ [Suspect]
     Active Substance: BUDESONIDE\FORMOTEROL FUMARATE
     Indication: EMPHYSEMA
  2. EXELON [Suspect]
     Active Substance: RIVASTIGMINE TARTRATE
     Indication: DEMENTIA ALZHEIMER^S TYPE
     Dosage: 2 DF, QD (STARTED ONE YEAR AGO)
     Route: 048
  3. RIVOTRIL [Concomitant]
     Active Substance: CLONAZEPAM
     Indication: INSOMNIA
     Dosage: 1 DF, QD (INITIATED 5 MONTHS AGO)
     Route: 048
  4. FORASEQ [Suspect]
     Active Substance: BUDESONIDE\FORMOTEROL FUMARATE
     Indication: CHRONIC OBSTRUCTIVE PULMONARY DISEASE
     Dosage: FORMOTEROL FUMARATE 12 MG AND BUDESONIDE 400 MG, BID
     Route: 048
  5. OMEPRAZOL [Concomitant]
     Active Substance: OMEPRAZOLE
     Indication: PROPHYLAXIS AGAINST GASTROINTESTINAL ULCER
     Dosage: 1 DF, QD (FROM 1 YEAR AGO)
     Route: 048
  6. LOSARTAN. [Concomitant]
     Active Substance: LOSARTAN
     Indication: HYPERTENSION
     Dosage: 2 DF, QD (STARTED 1 YEAR AGO)
     Route: 048
  7. CALCIUM [Concomitant]
     Active Substance: CALCIUM
     Indication: MINERAL SUPPLEMENTATION
     Dosage: 2 DF, QD (STARTED 10 YEARS AGO)
     Route: 048

REACTIONS (16)
  - Paralysis [Not Recovered/Not Resolved]
  - Speech disorder [Not Recovered/Not Resolved]
  - Cerebral ischaemia [Not Recovered/Not Resolved]
  - Fall [Recovered/Resolved]
  - Dementia Alzheimer^s type [Not Recovered/Not Resolved]
  - Transient ischaemic attack [Not Recovered/Not Resolved]
  - Bone atrophy [Not Recovered/Not Resolved]
  - Autism [Not Recovered/Not Resolved]
  - Pruritus [Not Recovered/Not Resolved]
  - Cerebral thrombosis [Recovered/Resolved]
  - Total lung capacity decreased [Not Recovered/Not Resolved]
  - Abasia [Not Recovered/Not Resolved]
  - Hydrocephalus [Recovered/Resolved]
  - Urinary tract infection [Not Recovered/Not Resolved]
  - Burns second degree [Not Recovered/Not Resolved]
  - Hyperglycaemia [Not Recovered/Not Resolved]
